FAERS Safety Report 25090268 (Version 1)
Quarter: 2025Q1

REPORT INFORMATION
  Report Type: Spontaneous
  Country: EG (occurrence: EG)
  Receive Date: 20250318
  Receipt Date: 20250318
  Transmission Date: 20250409
  Serious: Yes (Other)
  Sender: ALKEM
  Company Number: EG-ALKEM LABORATORIES LIMITED-EG-ALKEM-2025-02854

PATIENT

DRUGS (1)
  1. MIRABEGRON [Suspect]
     Active Substance: MIRABEGRON
     Indication: Hypertonic bladder
     Dosage: UNK, OD (ONCE DAILY IN THE MORNING AFTER A MEAL)
     Route: 048

REACTIONS (2)
  - Hallucination [Unknown]
  - Abnormal behaviour [Unknown]
